FAERS Safety Report 9828552 (Version 1)
Quarter: 2014Q1

REPORT INFORMATION
  Report Type: Spontaneous
  Country: US (occurrence: US)
  Receive Date: 20140117
  Receipt Date: 20140117
  Transmission Date: 20141002
  Serious: Yes (Other)
  Sender: FDA-Public Use
  Company Number: PHHY2014US004080

PATIENT
  Age: 71 Year
  Sex: Female

DRUGS (1)
  1. DONEPEZIL [Suspect]
     Indication: VASCULAR DEMENTIA

REACTIONS (1)
  - Mania [Unknown]
